FAERS Safety Report 8316399-X (Version None)
Quarter: 2012Q2

REPORT INFORMATION
  Report Type: 
  Country: None (occurrence: None)
  Receive Date: 20120427
  Receipt Date: 20120417
  Transmission Date: 20120825
  Serious: No
  Sender: FDA-Public Use
  Company Number: US-PFIZER INC-2012097174

PATIENT

DRUGS (11)
  1. POTASSIUM PENICILLIN G [Suspect]
     Dosage: UNK
  2. CODEINE [Suspect]
     Dosage: UNK
  3. PROCARDIA [Suspect]
     Dosage: UNK
  4. CRESTOR [Suspect]
     Dosage: UNK
  5. KLONOPIN [Suspect]
     Dosage: UNK
  6. NEURONTIN [Suspect]
     Dosage: UNK
  7. VASOTEC [Suspect]
     Dosage: UNK
  8. FOSAMAX [Suspect]
     Dosage: UNK
  9. PRAVASTATIN [Suspect]
     Dosage: UNK
  10. AMOXICILLIN [Suspect]
     Dosage: UNK
  11. ZOCOR [Suspect]
     Dosage: UNK

REACTIONS (1)
  - DRUG HYPERSENSITIVITY [None]
